FAERS Safety Report 9288961 (Version 2)
Quarter: 2013Q3

REPORT INFORMATION
  Report Type: Spontaneous
  Country: PL (occurrence: PL)
  Receive Date: 20130514
  Receipt Date: 20130701
  Transmission Date: 20140515
  Serious: Yes (Hospitalization, Other)
  Sender: FDA-Public Use
  Company Number: PL-BRISTOL-MYERS SQUIBB COMPANY-18870394

PATIENT
  Age: 73 Year
  Sex: Female

DRUGS (3)
  1. DASATINIB [Suspect]
     Indication: CHRONIC MYELOID LEUKAEMIA
     Route: 048
     Dates: start: 201207, end: 20130506
  2. DIUVER [Concomitant]
  3. SPIRONOL [Concomitant]

REACTIONS (2)
  - Pleural effusion [Recovered/Resolved]
  - Circulatory collapse [Unknown]
